FAERS Safety Report 7517149-7 (Version None)
Quarter: 2011Q2

REPORT INFORMATION
  Report Type: 
  Country: None (occurrence: None)
  Receive Date: 20110601
  Receipt Date: 20110526
  Transmission Date: 20111010
  Serious: Yes (Hospitalization, Other)
  Sender: FDA-Public Use
  Company Number: JP-PFIZER INC-2011114490

PATIENT
  Age: 79 Year
  Sex: Male

DRUGS (5)
  1. LYRICA [Suspect]
     Dosage: 75 MG, 1X/DAY
     Route: 048
     Dates: start: 20110509
  2. SELBEX [Concomitant]
     Dosage: UNK
     Route: 048
  3. METHYCOBAL [Concomitant]
     Dosage: UNK
  4. LYRICA [Suspect]
     Indication: CARPAL TUNNEL SYNDROME
     Dosage: 150 MG DAILY (TWO 75MG CAPSULES)
     Route: 048
     Dates: start: 20110325, end: 20110509
  5. LOXONIN [Concomitant]
     Dosage: UNK
     Route: 048

REACTIONS (2)
  - SOMNOLENCE [None]
  - GASTROINTESTINAL PERFORATION [None]
